FAERS Safety Report 4898397-1 (Version None)
Quarter: 2006Q1

REPORT INFORMATION
  Report Type: 
  Country: None (occurrence: None)
  Receive Date: 20060131
  Receipt Date: 20060131
  Transmission Date: 20060701
  Serious: Yes (Life-Threatening, Hospitalization)
  Sender: FDA-Public Use
  Company Number: None

PATIENT
  Age: 49 Year
  Sex: Female
  Weight: 59.8748 kg

DRUGS (2)
  1. KETEK [Suspect]
     Indication: SINUSITIS
     Dosage: 400 MG TWO PO QD
     Route: 048
     Dates: start: 20051110
  2. KETEK [Suspect]
     Indication: SINUSITIS
     Dosage: 400 MG TWO PO QD
     Route: 048
     Dates: start: 20051116

REACTIONS (1)
  - HEPATITIS ACUTE [None]
